FAERS Safety Report 23797738 (Version 2)
Quarter: 2025Q3

REPORT INFORMATION
  Report Type: Spontaneous
  Country: US (occurrence: US)
  Receive Date: 20240430
  Receipt Date: 20250903
  Transmission Date: 20251020
  Serious: No
  Sender: CHATTEM
  Company Number: US-OPELLA-2024OHG012871

PATIENT
  Age: 96 Year
  Sex: Female

DRUGS (1)
  1. CHILDREN^S ALLEGRA ALLERGY [Suspect]
     Active Substance: FEXOFENADINE HYDROCHLORIDE
     Indication: Allergy to animal
     Route: 048

REACTIONS (3)
  - Product administered to patient of inappropriate age [Unknown]
  - Product prescribing issue [Unknown]
  - No adverse event [Unknown]
